FAERS Safety Report 19809019 (Version 1)
Quarter: 2021Q3

REPORT INFORMATION
  Report Type: Spontaneous
  Country: US (occurrence: US)
  Receive Date: 20210908
  Receipt Date: 20210908
  Transmission Date: 20211014
  Serious: No
  Sender: FDA-Public Use
  Company Number: US-TEVA-2021-US-1949185

PATIENT
  Age: 57 Year
  Sex: Female

DRUGS (8)
  1. DEXTROAMPHET SACCHARAT, AMPHET ASPARTATE, DEXTROAMPHET SULFATE AND AMPHET SULFAT [Concomitant]
     Active Substance: AMPHETAMINE ASPARTATE\AMPHETAMINE SULFATE\DEXTROAMPHETAMINE SACCHARATE\DEXTROAMPHETAMINE SULFATE
     Route: 065
  2. AUSTEDO [Concomitant]
     Active Substance: DEUTETRABENAZINE
     Dosage: 18 MILLIGRAM DAILY; WEEK 2?MAINTENANCE DOSE
     Route: 065
  3. AUSTEDO [Concomitant]
     Active Substance: DEUTETRABENAZINE
     Dosage: 30 MILLIGRAM DAILY; WEEK 4?MAINTENANCE DOSE
     Route: 065
  4. BUPROPION HCL [Suspect]
     Active Substance: BUPROPION HYDROCHLORIDE
     Route: 065
  5. AUSTEDO [Concomitant]
     Active Substance: DEUTETRABENAZINE
     Indication: TARDIVE DYSKINESIA
     Dosage: 12 MILLIGRAM DAILY; WEEK 1?MAINTENANCE DOSE
     Route: 065
  6. DEPO?ESTRADIOL [Concomitant]
     Active Substance: ESTRADIOL CYPIONATE
     Route: 065
  7. AUSTEDO [Concomitant]
     Active Substance: DEUTETRABENAZINE
     Dosage: 24 MILLIGRAM DAILY; WEEK 3?MAINTENANCE DOSE
     Route: 065
  8. CELEXA [Concomitant]
     Active Substance: CITALOPRAM HYDROBROMIDE
     Route: 065

REACTIONS (1)
  - Drug hypersensitivity [Unknown]

NARRATIVE: CASE EVENT DATE: 20210825
